FAERS Safety Report 24730801 (Version 1)
Quarter: 2024Q4

REPORT INFORMATION
  Report Type: Spontaneous
  Country: US (occurrence: None)
  Receive Date: 20241212
  Receipt Date: 20241212
  Transmission Date: 20250115
  Serious: Yes (Hospitalization)
  Sender: Public
  Company Number: None

PATIENT
  Age: 67 Year
  Sex: Female

DRUGS (11)
  1. BENLYSTA [Suspect]
     Active Substance: BELIMUMAB
     Indication: Systemic lupus erythematosus
     Dosage: FREQUENCY : WEEKLY;?
     Route: 058
     Dates: start: 20211223
  2. ATORVASTATIN TAB 80MG [Concomitant]
  3. BENLYSTA INJ 200MG/ML [Concomitant]
  4. BOOSTRIX INJ [Concomitant]
  5. CARVEDILOL TAB 12.5MG [Concomitant]
  6. FLUARIX QUAD INJ 2022-23 [Concomitant]
  7. FUROSEMIDE [Concomitant]
     Active Substance: FUROSEMIDE
  8. HYDROXYCHLOROQUINE [Concomitant]
     Active Substance: HYDROXYCHLOROQUINE
  9. KENALOG-40 INJ 40MG/ML [Concomitant]
  10. LIPITOR TAB 80MG [Concomitant]
  11. MYCOPHENOLATE MOFETIL [Concomitant]
     Active Substance: MYCOPHENOLATE MOFETIL

REACTIONS (4)
  - Pneumonia [None]
  - Infection [None]
  - Discomfort [None]
  - Intentional dose omission [None]

NARRATIVE: CASE EVENT DATE: 20241211
